FAERS Safety Report 5354461-4 (Version None)
Quarter: 2007Q2

REPORT INFORMATION
  Report Type: 
  Country: None (occurrence: None)
  Receive Date: 20070608
  Receipt Date: 20070522
  Transmission Date: 20071010
  Serious: Yes (Hospitalization)
  Sender: FDA-Public Use
  Company Number: S07-FRA-01919-01

PATIENT
  Age: 48 Year
  Sex: Female
  Weight: 63 kg

DRUGS (6)
  1. ESCITALOPRAM [Suspect]
     Indication: DEPRESSION
     Dosage: 20 MG QD PO
     Route: 048
     Dates: start: 20061204, end: 20070129
  2. ESCITALOPRAM [Suspect]
     Indication: DEPRESSION
     Dosage: 40 MG QD PO
     Route: 048
     Dates: start: 20070129, end: 20070227
  3. ESCITALOPRAM [Suspect]
     Indication: MAJOR DEPRESSION
     Dosage: 30 MG QD PO
     Route: 048
     Dates: start: 20070227
  4. LORAZEPAM [Concomitant]
  5. IMOVANE            (ZOPICLONE) [Concomitant]
  6. LOVENOX [Concomitant]

REACTIONS (2)
  - PRESCRIBED OVERDOSE [None]
  - THROMBOPHLEBITIS [None]
